FAERS Safety Report 11742161 (Version 2)
Quarter: 2015Q4

REPORT INFORMATION
  Report Type: Report from Study
  Country: PL (occurrence: PL)
  Receive Date: 20151116
  Receipt Date: 20151120
  Transmission Date: 20160304
  Serious: Yes (Disabling, Other)
  Sender: FDA-Public Use
  Company Number: PL-ASTELLAS-2015US040851

PATIENT
  Sex: Female
  Weight: 37 kg

DRUGS (1)
  1. TACROLIMUS. [Suspect]
     Active Substance: TACROLIMUS
     Indication: DERMATITIS ATOPIC
     Dosage: 0.03 %, UNKNOWN FREQ. AS MAINTENANCE TREATMENT
     Route: 061
     Dates: start: 20080916

REACTIONS (1)
  - Scoliosis [Unknown]
